FAERS Safety Report 22783119 (Version 7)
Quarter: 2024Q2

REPORT INFORMATION
  Report Type: Spontaneous
  Country: US (occurrence: US)
  Receive Date: 20230803
  Receipt Date: 20240621
  Transmission Date: 20240716
  Serious: Yes (Hospitalization, Other)
  Sender: FDA-Public Use
  Company Number: US-PFIZER INC-PV202300132705

PATIENT
  Age: 75 Year
  Sex: Female
  Weight: 61.68 kg

DRUGS (4)
  1. IBRANCE [Suspect]
     Active Substance: PALBOCICLIB
     Indication: Breast cancer female
     Dosage: 125 MG, 1X/DAY
     Dates: start: 202308
  2. IBRANCE [Suspect]
     Active Substance: PALBOCICLIB
     Dosage: 100 MG
  3. ANASTROZOLE [Concomitant]
     Active Substance: ANASTROZOLE
     Indication: Oestrogen deficiency
     Dosage: 1 MG, 1X/DAY
     Dates: start: 202307
  4. PROBIOTICS NOS [Concomitant]
     Active Substance: PROBIOTICS NOS
     Dosage: UNK
     Dates: start: 20230901

REACTIONS (10)
  - COVID-19 [Unknown]
  - Respiratory tract infection viral [Unknown]
  - Gastrointestinal viral infection [Unknown]
  - White blood cell count decreased [Not Recovered/Not Resolved]
  - Illness [Unknown]
  - Sluggishness [Unknown]
  - Trichorrhexis [Unknown]
  - Hair texture abnormal [Unknown]
  - Decreased appetite [Not Recovered/Not Resolved]
  - Asthenia [Unknown]
